FAERS Safety Report 23903911 (Version 1)
Quarter: 2024Q2

REPORT INFORMATION
  Report Type: Spontaneous
  Country: US (occurrence: US)
  Receive Date: 20240527
  Receipt Date: 20240527
  Transmission Date: 20240716
  Serious: No
  Sender: FDA-Public Use
  Company Number: US-ALCON LABORATORIES-ALC2024US001492

PATIENT
  Sex: Female

DRUGS (1)
  1. SIMBRINZA [Suspect]
     Active Substance: BRIMONIDINE TARTRATE\BRINZOLAMIDE
     Indication: Product used for unknown indication
     Dosage: UNK
     Route: 047

REACTIONS (7)
  - Intraocular pressure increased [Unknown]
  - Product dose omission issue [Unknown]
  - Foreign body sensation in eyes [Unknown]
  - Eye irritation [Unknown]
  - Dry eye [Unknown]
  - Eye pruritus [Unknown]
  - Ocular discomfort [Unknown]
